FAERS Safety Report 9378118 (Version 3)
Quarter: 2013Q4

REPORT INFORMATION
  Report Type: Spontaneous
  Country: JP (occurrence: JP)
  Receive Date: 20130701
  Receipt Date: 20131211
  Transmission Date: 20140711
  Serious: Yes (Life-Threatening)
  Sender: FDA-Public Use
  Company Number: JP-GLAXOSMITHKLINE-B0888143A

PATIENT
  Age: 55 Year
  Sex: Male

DRUGS (9)
  1. VOTRIENT 200MG [Suspect]
     Indication: ANGIOSARCOMA
     Dosage: 200MG PER DAY
     Route: 048
     Dates: start: 201212, end: 201303
  2. VOTRIENT 200MG [Suspect]
     Indication: ANGIOSARCOMA
     Dosage: 400MG PER DAY
     Route: 048
     Dates: start: 201303
  3. VOTRIENT 200MG [Suspect]
     Indication: ANGIOSARCOMA
     Dosage: 200MG PER DAY
     Route: 048
     Dates: start: 20130402, end: 20130415
  4. VOTRIENT 200MG [Suspect]
     Indication: ANGIOSARCOMA
     Dosage: 400MG PER DAY
     Route: 048
     Dates: start: 20130416, end: 20130418
  5. MAGLAX [Concomitant]
     Indication: CONSTIPATION
     Dosage: 1IUAX THREE TIMES PER DAY
     Route: 048
     Dates: start: 20121228, end: 20130419
  6. MIYA BM [Concomitant]
     Indication: DIARRHOEA
     Dosage: 1IUAX THREE TIMES PER DAY
     Route: 048
     Dates: start: 20130110, end: 20130419
  7. MOBIC [Concomitant]
     Indication: FLANK PAIN
     Dosage: 1IUAX PER DAY
     Route: 048
     Dates: start: 20130315, end: 20130419
  8. PROTECADIN [Concomitant]
     Indication: GASTRITIS EROSIVE
     Dosage: 1IUAX PER DAY
     Route: 048
     Dates: start: 20130403, end: 20130419
  9. BLOPRESS [Concomitant]
     Indication: HYPERTENSION
     Dosage: 1IUAX PER DAY
     Route: 048
     Dates: start: 20130409, end: 20130424

REACTIONS (5)
  - Intra-abdominal haemorrhage [Not Recovered/Not Resolved]
  - Blood pressure decreased [Unknown]
  - Loss of consciousness [Unknown]
  - Haemorrhagic ascites [Not Recovered/Not Resolved]
  - Pleural effusion [Not Recovered/Not Resolved]
